FAERS Safety Report 15760600 (Version 7)
Quarter: 2020Q3

REPORT INFORMATION
  Report Type: Spontaneous
  Country: US (occurrence: US)
  Receive Date: 20181226
  Receipt Date: 20200921
  Transmission Date: 20201102
  Serious: No
  Sender: FDA-Public Use
  Company Number: US-PFIZER INC-2018527297

PATIENT
  Age: 43 Year
  Sex: Female
  Weight: 53 kg

DRUGS (14)
  1. PARAPLATIN [Concomitant]
     Active Substance: CARBOPLATIN
     Indication: CHEMOTHERAPY
     Dosage: UNK
  2. DOCETAXEL. [Suspect]
     Active Substance: DOCETAXEL
     Dosage: 80 MG, SINGLE
     Dates: start: 20120521, end: 20120521
  3. DOCETAXEL SANDOZ [Suspect]
     Active Substance: DOCETAXEL
     Indication: TRIPLE POSITIVE BREAST CANCER
     Dosage: 110 MG, SINGLE
     Dates: start: 20120213, end: 20120213
  4. DOCETAXEL SANDOZ [Suspect]
     Active Substance: DOCETAXEL
     Dosage: 90 MG, SINGLE
     Dates: start: 20120402, end: 20120402
  5. METHADONE [Concomitant]
     Active Substance: METHADONE HYDROCHLORIDE
     Dosage: UNK
     Dates: start: 2005
  6. HERCEPTIN [Concomitant]
     Active Substance: TRASTUZUMAB
     Indication: CHEMOTHERAPY
     Dosage: UNK
  7. DOCETAXEL. [Suspect]
     Active Substance: DOCETAXEL
     Dosage: 90 MG, SINGLE
     Dates: start: 20120402, end: 20120402
  8. DOCETAXEL SANDOZ [Suspect]
     Active Substance: DOCETAXEL
     Dosage: 90 MG, SINGLE
     Dates: start: 20120423, end: 20120423
  9. TAXOTERE [Concomitant]
     Active Substance: DOCETAXEL
     Indication: CHEMOTHERAPY
     Dosage: UNK
  10. DOCETAXEL. [Suspect]
     Active Substance: DOCETAXEL
     Indication: TRIPLE POSITIVE BREAST CANCER
     Dosage: 110 MG, SINGLE
     Dates: start: 20120213, end: 20120213
  11. DOCETAXEL. [Suspect]
     Active Substance: DOCETAXEL
     Dosage: 110 MG, SINGLE
     Dates: start: 20120305, end: 20120305
  12. DOCETAXEL. [Suspect]
     Active Substance: DOCETAXEL
     Dosage: 90 MG, SINGLE
     Dates: start: 20120423, end: 20120423
  13. DOCETAXEL SANDOZ [Suspect]
     Active Substance: DOCETAXEL
     Dosage: 110 MG, SINGLE
     Dates: start: 20120305, end: 20120305
  14. DOCETAXEL SANDOZ [Suspect]
     Active Substance: DOCETAXEL
     Dosage: 80 MG, SINGLE
     Dates: start: 20120521, end: 20120521

REACTIONS (5)
  - Hair disorder [Not Recovered/Not Resolved]
  - Madarosis [Not Recovered/Not Resolved]
  - Alopecia [Not Recovered/Not Resolved]
  - Hair texture abnormal [Not Recovered/Not Resolved]
  - Hair colour changes [Not Recovered/Not Resolved]

NARRATIVE: CASE EVENT DATE: 201211
